FAERS Safety Report 9099223 (Version 1)
Quarter: 2013Q1

REPORT INFORMATION
  Report Type: Spontaneous
  Country: US (occurrence: US)
  Receive Date: 20130214
  Receipt Date: 20130214
  Transmission Date: 20140127
  Serious: No
  Sender: FDA-Public Use
  Company Number: US-COVIDIEN/TYCO HEALTHCARE/MALLINCKRODT-T201300170

PATIENT
  Sex: Female
  Weight: 35.37 kg

DRUGS (4)
  1. FENTANYL TRANSDERMAL SYSTEM [Suspect]
     Indication: PAIN
     Dosage: 100 MCG/HR Q 72 HOURS
     Route: 062
     Dates: start: 201107
  2. FENTANYL [Concomitant]
     Dosage: UNK
     Dates: end: 2011
  3. OXYCODONE [Concomitant]
     Indication: PAIN
     Dosage: 3 TABS Q 4HRS
  4. ASPIRIN [Concomitant]
     Dosage: UNK

REACTIONS (2)
  - Wrong technique in drug usage process [Unknown]
  - Drug effect decreased [Not Recovered/Not Resolved]
